FAERS Safety Report 8811823 (Version 3)
Quarter: 2012Q4

REPORT INFORMATION
  Report Type: 
  Country: US (occurrence: US)
  Receive Date: 20120927
  Receipt Date: 20121116
  Transmission Date: 20130627
  Serious: Yes (Hospitalization)
  Sender: FDA-Public Use
  Company Number: US-GLAXOSMITHKLINE-A0995320A

PATIENT
  Age: 43 Year
  Sex: Female

DRUGS (1)
  1. FLOLAN [Suspect]
     Indication: PRODUCT USED FOR UNKNOWN INDICATION
     Dosage: 19NGKM Continuous
     Route: 065
     Dates: start: 20070616

REACTIONS (2)
  - Multiple sclerosis [Recovered/Resolved]
  - Blood culture positive [Unknown]
